FAERS Safety Report 8831939 (Version 1)
Quarter: 2012Q4

REPORT INFORMATION
  Report Type: 
  Country: BR (occurrence: BR)
  Receive Date: 20121008
  Receipt Date: 20121008
  Transmission Date: 20130627
  Serious: Yes (Other)
  Sender: FDA-Public Use
  Company Number: BR-ASTRAZENECA-2012SE01429

PATIENT
  Age: 55 Year
  Sex: Female

DRUGS (2)
  1. ATACAND HCT [Suspect]
     Indication: HYPERTENSION
     Dosage: 16/12.5 MG
     Route: 048
     Dates: end: 2012
  2. ATACAND [Suspect]
     Indication: HYPERTENSION
     Dosage: 16/5MG
     Route: 048
     Dates: start: 2012, end: 2012

REACTIONS (6)
  - Diabetes mellitus [Unknown]
  - Oedema peripheral [Unknown]
  - Erythema [Unknown]
  - Hypertension [Unknown]
  - Feeling hot [Unknown]
  - Drug ineffective [Unknown]
